FAERS Safety Report 4274128-3 (Version None)
Quarter: 2004Q1

REPORT INFORMATION
  Report Type: 
  Country: None (occurrence: None)
  Receive Date: 20040120
  Receipt Date: 20010625
  Transmission Date: 20041129
  Serious: Yes (Hospitalization)
  Sender: FDA-Public Use
  Company Number: US-BRISTOL-MYERS SQUIBB COMPANY-10889319

PATIENT
  Age: 54 Year
  Sex: Male
  Weight: 71 kg

DRUGS (6)
  1. ATORVASTATIN [Suspect]
     Dosage: MOST RECENT DOSE PRIOR TO EVENT 18 JUNE 2001
     Route: 048
     Dates: start: 20010516
  2. GATIFLOXACIN [Suspect]
     Dosage: MOST RECENT DOSE PRIOR TO EVENT 18 JUNE 2001
     Route: 048
     Dates: start: 20010606
  3. VIOXX [Suspect]
     Route: 048
     Dates: start: 20010531, end: 20010619
  4. LOPRESSOR [Concomitant]
     Route: 048
     Dates: start: 20010507
  5. ASPIRIN [Concomitant]
     Route: 048
     Dates: start: 20010507
  6. PLAVIX [Concomitant]

REACTIONS (10)
  - ALANINE AMINOTRANSFERASE INCREASED [None]
  - ASPARTATE AMINOTRANSFERASE INCREASED [None]
  - BLOOD ALKALINE PHOSPHATASE INCREASED [None]
  - BLOOD SODIUM DECREASED [None]
  - DIABETES MELLITUS [None]
  - FATIGUE [None]
  - GAMMA-GLUTAMYLTRANSFERASE INCREASED [None]
  - LIVER FUNCTION TEST ABNORMAL [None]
  - RESPIRATORY RATE INCREASED [None]
  - WEIGHT DECREASED [None]
